FAERS Safety Report 5730106-6 (Version None)
Quarter: 2008Q2

REPORT INFORMATION
  Report Type: 
  Country: None (occurrence: None)
  Receive Date: 20080507
  Receipt Date: 20080422
  Transmission Date: 20081010
  Serious: Yes (Hospitalization)
  Sender: FDA-Public Use
  Company Number: PHHY2008JP01135

PATIENT
  Age: 68 Year
  Sex: Male
  Weight: 65 kg

DRUGS (8)
  1. PARIET [Concomitant]
     Dosage: 20 MG
     Route: 048
     Dates: start: 20071207
  2. MUCOSTA [Concomitant]
     Dosage: 300 MG
     Route: 048
     Dates: start: 20071207
  3. GLEEVEC [Suspect]
     Indication: CHRONIC MYELOID LEUKAEMIA
     Dosage: 400 MG, QD
     Route: 048
     Dates: start: 20071220, end: 20071225
  4. GLEEVEC [Suspect]
     Route: 048
     Dates: start: 20071225, end: 20071228
  5. GLEEVEC [Suspect]
     Route: 048
     Dates: start: 20071230, end: 20080111
  6. GLEEVEC [Suspect]
     Route: 048
     Dates: start: 20080112, end: 20080121
  7. GLEEVEC [Suspect]
     Route: 048
     Dates: start: 20080122
  8. GLEEVEC [Suspect]
     Route: 048
     Dates: start: 20071229, end: 20071230

REACTIONS (14)
  - ARTHRALGIA [None]
  - BLOOD CALCIUM INCREASED [None]
  - BONE MARROW LEUKAEMIC CELL INFILTRATION [None]
  - BONE PAIN [None]
  - CELLULITIS [None]
  - FASCIITIS [None]
  - GAIT DISTURBANCE [None]
  - HAEMATOCRIT DECREASED [None]
  - HAEMATOMA [None]
  - HAEMOGLOBIN DECREASED [None]
  - LYMPHOCYTE COUNT DECREASED [None]
  - MYOSITIS [None]
  - OEDEMA [None]
  - SWELLING [None]
